FAERS Safety Report 4541098-X (Version None)
Quarter: 2004Q4

REPORT INFORMATION
  Report Type: 
  Country: None (occurrence: None)
  Receive Date: 20041228
  Receipt Date: 20041216
  Transmission Date: 20050328
  Serious: Yes (Hospitalization)
  Sender: FDA-Public Use
  Company Number: 6012255

PATIENT
  Age: 79 Year
  Sex: Female

DRUGS (12)
  1. LEVOTHYROXINE SODIUM [Suspect]
     Indication: HYPOTHYROIDISM
     Dosage: ORAL
     Route: 048
  2. SINTROM (4 MG, TABLETS) (ACENOCOUMAROL) [Suspect]
     Dosage: ORAL
     Route: 048
  3. FENOFIBRATE [Suspect]
     Indication: LIPID METABOLISM DISORDER
     Dosage: ORAL
     Route: 048
  4. TAREG (VALSARTAN) [Concomitant]
  5. SECTRAL (200 MG, TABLETS) (ACEBUTOLOL HYDROCHLORIDE) [Concomitant]
  6. AMLOR (5 MG, CAPSULES) (AMLODIPINE BESILATE) [Concomitant]
  7. LEXOMIL (BROMAZEPAM) [Concomitant]
  8. ADANCOR (NICORANDIL) [Concomitant]
  9. VITAMIN B1 TAB [Concomitant]
  10. VITAMIN B6 [Concomitant]
  11. NOVONORM (REPAGLINIDE) [Concomitant]
  12. INSULATARD NPH HUMAN [Concomitant]

REACTIONS (6)
  - ALANINE AMINOTRANSFERASE INCREASED [None]
  - ASPARTATE AMINOTRANSFERASE INCREASED [None]
  - BLOOD CREATININE INCREASED [None]
  - DRUG INTERACTION [None]
  - INTERNATIONAL NORMALISED RATIO INCREASED [None]
  - RECTAL HAEMORRHAGE [None]
